FAERS Safety Report 14094252 (Version 2)
Quarter: 2017Q4

REPORT INFORMATION
  Report Type: Spontaneous
  Country: US (occurrence: US)
  Receive Date: 20171016
  Receipt Date: 20171030
  Transmission Date: 20180321
  Serious: Yes (Hospitalization)
  Sender: FDA-Public Use
  Company Number: US-SUNOVION-2017SUN004361

PATIENT
  Sex: Female

DRUGS (4)
  1. LAMICTAL [Concomitant]
     Active Substance: LAMOTRIGINE
     Dosage: UNK
  2. LATUDA [Suspect]
     Active Substance: LURASIDONE HYDROCHLORIDE
     Dosage: 80 MG, QD
     Route: 048
  3. LATUDA [Suspect]
     Active Substance: LURASIDONE HYDROCHLORIDE
     Indication: BIPOLAR DISORDER
     Dosage: 80 MG, BID
     Route: 048
  4. LITHIUM. [Concomitant]
     Active Substance: LITHIUM
     Dosage: UNK

REACTIONS (3)
  - Off label use [Unknown]
  - Incorrect dose administered [Unknown]
  - Mania [Not Recovered/Not Resolved]
